FAERS Safety Report 5085776-5 (Version None)
Quarter: 2006Q3

REPORT INFORMATION
  Report Type: 
  Country: None (occurrence: None)
  Receive Date: 20060817
  Receipt Date: 20060805
  Transmission Date: 20061208
  Serious: Yes (Other)
  Sender: FDA-Public Use
  Company Number: 2006096809

PATIENT
  Age: 78 Year
  Sex: Female
  Weight: 58.9676 kg

DRUGS (4)
  1. NORVASC [Suspect]
     Indication: HYPERTENSION
     Dosage: 2.5 MG (2.5 MG, 1 IN 1 D) ORAL
     Route: 048
  2. ESTRADIOL INJ [Concomitant]
  3. LORAZEPAM [Concomitant]
  4. ATENOLOL [Concomitant]

REACTIONS (8)
  - BLOOD PRESSURE INADEQUATELY CONTROLLED [None]
  - CATARACT [None]
  - CORONARY ARTERIAL STENT INSERTION [None]
  - DRUG INEFFECTIVE [None]
  - NEUROPATHY PERIPHERAL [None]
  - OBSTRUCTION [None]
  - RAYNAUD'S PHENOMENON [None]
  - RENAL DISORDER [None]
